FAERS Safety Report 5335236-9 (Version None)
Quarter: 2007Q2

REPORT INFORMATION
  Report Type: 
  Country: None (occurrence: None)
  Receive Date: 20070525
  Receipt Date: 20070517
  Transmission Date: 20071010
  Serious: Yes (Hospitalization)
  Sender: FDA-Public Use
  Company Number: JP-PFIZER INC-2006154209

PATIENT
  Sex: Female
  Weight: 50 kg

DRUGS (12)
  1. AZITHROMYCIN [Suspect]
     Indication: PNEUMONIA
     Dosage: DAILY DOSE:2GRAM-FREQ:ONCE
     Route: 048
     Dates: start: 20061211, end: 20061211
  2. SERRAPEPTASE [Concomitant]
     Route: 048
     Dates: start: 20061211, end: 20061213
  3. DEXTROMETHORPHAN HYDROBROMIDE [Concomitant]
     Route: 048
     Dates: start: 20061211, end: 20061213
  4. ALUMINIUM GLYCINATE W/MAGNESIUM HYDROXIDE [Concomitant]
     Route: 048
     Dates: start: 20061213, end: 20061213
  5. ACETAMINOPHEN [Concomitant]
  6. ZOLPIDEM [Concomitant]
  7. CIPROFLOXACIN [Concomitant]
     Dates: start: 20061213, end: 20061218
  8. SALINE MIXTURE [Concomitant]
     Dates: start: 20061213, end: 20061218
  9. CODEINE SUL TAB [Concomitant]
     Dates: start: 20061213, end: 20061218
  10. AMBROXOL HYDROCHLORIDE [Concomitant]
     Dates: start: 20061213, end: 20061218
  11. SENNOSIDE A+B [Concomitant]
     Dates: start: 20061213, end: 20061218
  12. FLUTICASONE PROPIONATE [Concomitant]
     Dates: start: 20061218

REACTIONS (2)
  - INTERSTITIAL LUNG DISEASE [None]
  - PNEUMONIA [None]
